FAERS Safety Report 20824232 (Version 1)
Quarter: 2022Q2

REPORT INFORMATION
  Report Type: Spontaneous
  Country: US (occurrence: US)
  Receive Date: 20220513
  Receipt Date: 20220513
  Transmission Date: 20220720
  Serious: Yes (Other)
  Sender: FDA-Public Use
  Company Number: US-BRISTOL-MYERS SQUIBB COMPANY-2022-034737

PATIENT
  Sex: Male
  Weight: 86 kg

DRUGS (4)
  1. ELIQUIS [Suspect]
     Active Substance: APIXABAN
     Indication: Deep vein thrombosis
     Dosage: DOSE : UNAVAILABLE;     FREQ : TWICE DAILY
     Route: 065
     Dates: start: 202103
  2. METOPROLOL [Concomitant]
     Active Substance: METOPROLOL
     Indication: Product used for unknown indication
     Route: 065
  3. FLOMAX [Concomitant]
     Active Substance: TAMSULOSIN HYDROCHLORIDE
     Indication: Product used for unknown indication
     Route: 065
  4. TRAMADOL GENERICS [Concomitant]
     Indication: Product used for unknown indication
     Route: 065

REACTIONS (3)
  - Prostate cancer [Unknown]
  - Off label use [Unknown]
  - Treatment noncompliance [Unknown]
